FAERS Safety Report 21964044 (Version 1)
Quarter: 2023Q1

REPORT INFORMATION
  Report Type: Other
  Country: US (occurrence: US)
  Receive Date: 20230207
  Receipt Date: 20230207
  Transmission Date: 20230417
  Serious: Yes (Hospitalization, Other)
  Sender: FDA-Public Use
  Company Number: US-DEXPHARM-20230260

PATIENT
  Age: 74 Year
  Sex: Male

DRUGS (15)
  1. OMEPRAZOLE [Suspect]
     Active Substance: OMEPRAZOLE
  2. METHYLPREDNISOLONE [Suspect]
     Active Substance: METHYLPREDNISOLONE
     Indication: Hypersensitivity
     Dosage: IV METHYLPREDNISOLONE 125MG
     Route: 050
  3. METHYLPREDNISOLONE [Suspect]
     Active Substance: METHYLPREDNISOLONE
     Indication: Hypersensitivity
     Dosage: IV METHYLPREDNISOLONE 125MG ONCE, THEN 40MG TWICE DAILY FOR TOTAL OF TWO DOSES
  4. LISINOPRIL [Suspect]
     Active Substance: LISINOPRIL
     Indication: Essential hypertension
  5. METFORMIN [Suspect]
     Active Substance: METFORMIN HYDROCHLORIDE
     Indication: Type 2 diabetes mellitus
  6. DIPHENHYDRAMINE [Concomitant]
     Active Substance: DIPHENHYDRAMINE
     Indication: Hypersensitivity
  7. PREDNISONE [Concomitant]
     Active Substance: PREDNISONE
     Indication: Hypersensitivity
  8. BUPROPION [Concomitant]
     Active Substance: BUPROPION
  9. CHOLECALCIFEROL [Concomitant]
     Active Substance: CHOLECALCIFEROL
  10. CYANOCOBALAMIN [Concomitant]
     Active Substance: CYANOCOBALAMIN
  11. GABAPENTIN [Concomitant]
     Active Substance: GABAPENTIN
  12. SOLIFENACIN [Concomitant]
     Active Substance: SOLIFENACIN
  13. TAMSULOSIN [Concomitant]
     Active Substance: TAMSULOSIN
  14. ATORVASTATIN [Concomitant]
     Active Substance: ATORVASTATIN
  15. ASPIRIN [Concomitant]
     Active Substance: ASPIRIN

REACTIONS (1)
  - Pancreatitis acute [Unknown]
